FAERS Safety Report 7769572-3 (Version None)
Quarter: 2011Q3

REPORT INFORMATION
  Report Type: 
  Country: None (occurrence: None)
  Receive Date: 20110922
  Receipt Date: 20110720
  Transmission Date: 20111222
  Serious: Yes (Other)
  Sender: FDA-Public Use
  Company Number: US-ASTRAZENECA-2007UW27801

PATIENT
  Age: 471 Month
  Sex: Female
  Weight: 108 kg

DRUGS (28)
  1. TRILAFON [Concomitant]
     Dosage: 4 MG-16 MG
     Dates: start: 20041208
  2. PRILOSEC [Concomitant]
     Dosage: 20 MG-40 MG
     Route: 048
     Dates: start: 20040610
  3. CORMAX [Concomitant]
     Dates: start: 20040610
  4. MENEST [Concomitant]
     Dates: start: 20040603
  5. SEROQUEL [Suspect]
     Indication: BIPOLAR DISORDER
     Dosage: 100 MG-700 MG
     Route: 048
     Dates: start: 20040610
  6. WELLBUTRIN [Concomitant]
     Dates: start: 20040101
  7. AMBIEN [Concomitant]
     Dosage: 5 MG-10 MG
     Dates: start: 20040610, end: 20041222
  8. SYNTHROID [Concomitant]
     Dates: start: 20040615
  9. DARVOCET [Concomitant]
     Dates: start: 19990723
  10. ZOCOR [Concomitant]
     Indication: HYPERCHOLESTEROLAEMIA
     Dosage: 20 MG-100 MG
     Dates: start: 20040610
  11. LITHIUM CARBONATE [Concomitant]
     Dates: start: 20040610
  12. LITHIUM CARBONATE [Concomitant]
  13. CLARINEX [Concomitant]
     Dates: start: 20041208
  14. SEROQUEL [Suspect]
     Dosage: 50 MG, 100 MG, 200 MG, 300 MG, AND 800 MG
     Route: 048
     Dates: start: 20040601, end: 20071001
  15. ABILIFY [Concomitant]
     Dates: start: 20041208
  16. CLARITIN [Concomitant]
     Dates: start: 19990723
  17. ALBUTEROL [Concomitant]
     Dosage: AS NECESSARY
     Dates: start: 19990723
  18. ATENOLOL [Concomitant]
     Dates: start: 20041208
  19. KLONOPIN [Concomitant]
  20. INDERAL [Concomitant]
     Indication: TACHYCARDIA
     Dates: start: 20000113
  21. WELLBUTRIN SR [Concomitant]
     Dates: start: 20040610
  22. LEVOTHROID [Concomitant]
     Dates: start: 20041208
  23. SKELAXIN [Concomitant]
     Indication: MUSCLE SPASMS
     Dates: start: 20040610
  24. XANAX [Concomitant]
     Dosage: 0.25 MG AS NECESSARY
     Dates: start: 20040610
  25. ABILIFY [Concomitant]
     Dosage: TOOK FOR 1 WEEK
     Dates: start: 20041201, end: 20041201
  26. RISPERDAL [Concomitant]
  27. CLARINEX [Concomitant]
     Dates: start: 20040729
  28. TRILEPTAL [Concomitant]
     Dosage: 300 MG-900 MG
     Dates: start: 20040610

REACTIONS (8)
  - HYPERGLYCAEMIA [None]
  - HYPERLIPIDAEMIA [None]
  - BLOOD TRIGLYCERIDES INCREASED [None]
  - BLOOD CHOLESTEROL INCREASED [None]
  - TYPE 2 DIABETES MELLITUS [None]
  - DIABETES MELLITUS INADEQUATE CONTROL [None]
  - WEIGHT INCREASED [None]
  - DIABETES MELLITUS [None]
